FAERS Safety Report 13159599 (Version 2)
Quarter: 2017Q1

REPORT INFORMATION
  Report Type: Spontaneous
  Country: KR (occurrence: KR)
  Receive Date: 20170127
  Receipt Date: 20170314
  Transmission Date: 20170428
  Serious: Yes (Hospitalization, Other)
  Sender: FDA-Public Use
  Company Number: KR-009507513-1701KOR011028

PATIENT
  Age: 48 Year
  Sex: Male
  Weight: 72.4 kg

DRUGS (18)
  1. ALBIS [Concomitant]
     Active Substance: BISMUTH SUBCITRATE\RANITIDINE HYDROCHLORIDE\SUCRALFATE
     Indication: PROPHYLAXIS AGAINST GASTROINTESTINAL ULCER
     Dosage: 1 TABLET, FREQUENCY: 1
     Route: 048
     Dates: start: 20160401
  2. MACPERAN [Concomitant]
     Active Substance: METOCLOPRAMIDE HYDROCHLORIDE
     Indication: PROPHYLAXIS
     Dosage: 10 MG, FREQUENCY: 1
     Route: 042
     Dates: start: 20160517, end: 20160517
  3. TRIDOL (TRAMADOL HYDROCHLORIDE) [Concomitant]
     Indication: PROPHYLAXIS
     Dosage: STRENGTH: 100MG/2ML, 1 AMP, FREQUENCY: 1
     Route: 042
     Dates: start: 20160517, end: 20160517
  4. PENIRAMIN [Concomitant]
     Indication: PROPHYLAXIS
     Dosage: 1 TABLET, FREQUENCY: 2
     Route: 048
     Dates: start: 20160428, end: 20160510
  5. STILNOX [Concomitant]
     Active Substance: ZOLPIDEM TARTRATE
     Indication: PROPHYLAXIS
     Dosage: 1 TABLET, FREQUENCY: 1
     Route: 048
     Dates: start: 20160516, end: 20160516
  6. STOGAR [Concomitant]
     Active Substance: LAFUTIDINE
     Indication: PROPHYLAXIS AGAINST GASTROINTESTINAL ULCER
     Dosage: 1 TABLET, FREQUENCY: 2
     Route: 048
     Dates: start: 20160506, end: 20160511
  7. ALOXI [Concomitant]
     Active Substance: PALONOSETRON HYDROCHLORIDE
     Indication: PREMEDICATION
     Dosage: 0.25 ML, FREQUENCY: 1
     Route: 042
     Dates: start: 20160517, end: 20160517
  8. URSA TABLETS [Concomitant]
     Indication: PROPHYLAXIS
     Dosage: 1 TABLET, FREQUENCY: 3
     Route: 048
     Dates: start: 20160419, end: 20160508
  9. ULTRACET [Concomitant]
     Active Substance: ACETAMINOPHEN\TRAMADOL HYDROCHLORIDE
     Indication: PAIN
     Dosage: 1 TABLET, FREQUENCY: 3
     Route: 048
     Dates: start: 201604, end: 20160508
  10. DEXA S [Concomitant]
     Indication: PREMEDICATION
     Dosage: STRENGTH: 5MG/ML, 8MG, FREQUENCY: 1
     Route: 042
     Dates: start: 20160517, end: 20160517
  11. BANAN [Concomitant]
     Active Substance: CEFPODOXIME PROXETIL
     Indication: PROPHYLAXIS
     Dosage: 1 TABLET, FREQUENCY: 2
     Route: 048
     Dates: start: 20160506, end: 20160511
  12. LEGALON 140 [Concomitant]
     Indication: PROPHYLAXIS
     Dosage: 1 CAPSULE, FREQUENCY:3
     Route: 048
     Dates: start: 20160419, end: 20160604
  13. EMEND (FOSAPREPITANT DIMEGLUMINE) [Suspect]
     Active Substance: FOSAPREPITANT DIMEGLUMINE
     Indication: PROPHYLAXIS OF NAUSEA AND VOMITING
     Dosage: 150 MG, ONCE
     Route: 042
     Dates: start: 20160425, end: 20160425
  14. EMEND (FOSAPREPITANT DIMEGLUMINE) [Suspect]
     Active Substance: FOSAPREPITANT DIMEGLUMINE
     Dosage: 150 MG, ONCE
     Route: 042
     Dates: start: 20160517, end: 20160517
  15. EMEND (FOSAPREPITANT DIMEGLUMINE) [Suspect]
     Active Substance: FOSAPREPITANT DIMEGLUMINE
     Dosage: 150 MG, ONCE
     Route: 042
     Dates: start: 20160621, end: 20160621
  16. REALDIRON [Concomitant]
     Indication: SKIN CANCER
     Dosage: 2.544 ML, 3 TIMES A WEEK SELF INJECTION, FREQUENCY: 0.5, CYCLE: 1
     Route: 058
     Dates: start: 20160425, end: 20160514
  17. TYLENOL [Concomitant]
     Active Substance: ACETAMINOPHEN
     Indication: PROPHYLAXIS
     Dosage: 1 TABLET, FREQUENCY: 2
     Route: 048
     Dates: start: 20160428, end: 20160510
  18. EMEND (FOSAPREPITANT DIMEGLUMINE) [Suspect]
     Active Substance: FOSAPREPITANT DIMEGLUMINE
     Dosage: 150 MG, ONCE
     Route: 042
     Dates: start: 20160801, end: 20160801

REACTIONS (7)
  - Gastric ulcer [Recovered/Resolved]
  - Insomnia [Recovered/Resolved]
  - Amnesia [Recovered/Resolved]
  - Chronic gastritis [Recovering/Resolving]
  - Disorientation [Recovered/Resolved]
  - Gastric ulcer [Recovered/Resolved]
  - Hypertension [Recovered/Resolved]

NARRATIVE: CASE EVENT DATE: 20160517
